FAERS Safety Report 7587249-4 (Version None)
Quarter: 2011Q3

REPORT INFORMATION
  Report Type: 
  Country: None (occurrence: None)
  Receive Date: 20110701
  Receipt Date: 20110621
  Transmission Date: 20111222
  Serious: Yes (Hospitalization)
  Sender: FDA-Public Use
  Company Number: US-ROCHE-785970

PATIENT
  Sex: Male

DRUGS (3)
  1. PEGINTERFERON ALFA-2A [Suspect]
     Indication: HEPATITIS C
     Dosage: LAST DOSE PRIOR TO SAE: 14 JUNE 2011.
     Route: 058
     Dates: start: 20110228
  2. RIBAVIRIN [Suspect]
     Indication: HEPATITIS C
     Dosage: LAST DOSE PRIOR TO SAE: 19 JUNE 2011.
     Route: 048
     Dates: start: 20110228
  3. TG4040 [Suspect]
     Indication: HEPATITIS C
     Dosage: DOSE: 0.5 ML AT THREE MONTHS. LAST DOSE PRIOR TO SAE: 11 APRIL 2011.
     Route: 065
     Dates: start: 20110328

REACTIONS (3)
  - RENAL FAILURE ACUTE [None]
  - URINARY TRACT INFECTION [None]
  - ANAEMIA [None]
